FAERS Safety Report 8924941 (Version 1)
Quarter: 2012Q4

REPORT INFORMATION
  Report Type: Spontaneous
  Country: US (occurrence: None)
  Receive Date: 20121126
  Receipt Date: 20121126
  Transmission Date: 20130627
  Serious: Yes (Hospitalization)
  Sender: FDA-Public Use
  Company Number: None

PATIENT

DRUGS (1)
  1. BACTRIM [Suspect]
     Indication: UTI
     Dosage: one pill twice a day po
     Route: 048
     Dates: start: 20121117, end: 20121121

REACTIONS (4)
  - Rash [None]
  - Dermatitis contact [None]
  - Rash macular [None]
  - Pruritus [None]
